FAERS Safety Report 6302101-X (Version None)
Quarter: 2009Q3

REPORT INFORMATION
  Report Type: 
  Country: None (occurrence: None)
  Receive Date: 20090807
  Receipt Date: 20090804
  Transmission Date: 20100115
  Serious: Yes (Death, Other)
  Sender: FDA-Public Use
  Company Number: US-CELGENEUS-163-21880-09042512

PATIENT
  Sex: Female

DRUGS (1)
  1. REVLIMID [Suspect]
     Route: 048
     Dates: start: 20090325, end: 20090416

REACTIONS (3)
  - ACUTE MYELOID LEUKAEMIA [None]
  - BLAST CELL CRISIS [None]
  - CARDIO-RESPIRATORY ARREST [None]
